FAERS Safety Report 20822316 (Version 1)
Quarter: 2022Q2

REPORT INFORMATION
  Report Type: Spontaneous
  Country: US (occurrence: US)
  Receive Date: 20220512
  Receipt Date: 20220512
  Transmission Date: 20220720
  Serious: Yes (Other)
  Sender: FDA-Public Use
  Company Number: US-ALLERGAN-2214897US

PATIENT
  Sex: Female
  Weight: 63.492 kg

DRUGS (14)
  1. DAPSONE [Suspect]
     Active Substance: DAPSONE
     Indication: Pyoderma gangrenosum
  2. SKYRIZI [Suspect]
     Active Substance: RISANKIZUMAB-RZAA
     Indication: Psoriasis
     Dosage: 150 MG, Q MONTH
     Route: 058
     Dates: start: 202111, end: 20220118
  3. SKYRIZI [Suspect]
     Active Substance: RISANKIZUMAB-RZAA
     Dosage: 75 MG TWICE PER MONTH
     Route: 058
     Dates: start: 202111, end: 20220118
  4. COSENTYX [Suspect]
     Active Substance: SECUKINUMAB
     Indication: Psoriasis
  5. CYCLOSPORINE [Suspect]
     Active Substance: CYCLOSPORINE
     Indication: Pyoderma gangrenosum
  6. LEVOTHYROXINE [Concomitant]
     Active Substance: LEVOTHYROXINE
     Indication: Goitre
  7. WELLBUTRIN [Concomitant]
     Active Substance: BUPROPION HYDROCHLORIDE
     Indication: Depression
  8. LAMICTAL [Concomitant]
     Active Substance: LAMOTRIGINE
     Indication: Major depression
  9. GEODON [Concomitant]
     Active Substance: ZIPRASIDONE HYDROCHLORIDE\ZIPRASIDONE MESYLATE
     Indication: Major depression
  10. MEMANTINE [Concomitant]
     Active Substance: MEMANTINE
     Indication: Migraine
  11. CANDESARTAN [Concomitant]
     Active Substance: CANDESARTAN
     Indication: Migraine
  12. MELATONIN [Concomitant]
     Active Substance: MELATONIN
     Indication: Somnambulism
  13. CLONAZEPAM [Concomitant]
     Active Substance: CLONAZEPAM
     Indication: Somnambulism
  14. MOTEGRITY [Concomitant]
     Active Substance: PRUCALOPRIDE SUCCINATE
     Indication: Irritable bowel syndrome

REACTIONS (6)
  - Pyoderma gangrenosum [Not Recovered/Not Resolved]
  - Psoriasis [Recovering/Resolving]
  - White blood cell count decreased [Not Recovered/Not Resolved]
  - Anaemia [Recovering/Resolving]
  - Off label use [Unknown]
  - Scar pain [Not Recovered/Not Resolved]

NARRATIVE: CASE EVENT DATE: 20210601
